FAERS Safety Report 9034349 (Version 1)
Quarter: 2013Q1

REPORT INFORMATION
  Report Type: Spontaneous
  Country: US (occurrence: None)
  Receive Date: 20130116
  Receipt Date: 20130116
  Transmission Date: 20140127
  Serious: Yes (Hospitalization)
  Sender: FDA-Public Use
  Company Number: None

PATIENT
  Age: 60 Year
  Sex: Female
  Weight: 96.22 kg

DRUGS (2)
  1. ADVAIR DISKUS [Suspect]
     Indication: CHRONIC OBSTRUCTIVE PULMONARY DISEASE
     Dosage: 2 PUFFS  BID  INHAL
     Route: 055
     Dates: start: 20120710, end: 20120712
  2. ADVAIR DISKUS [Suspect]
     Indication: ASTHMA
     Dosage: 2 PUFFS  BID  INHAL
     Route: 055
     Dates: start: 20120710, end: 20120712

REACTIONS (3)
  - Atrial fibrillation [None]
  - Atrial flutter [None]
  - Tachycardia [None]
